FAERS Safety Report 8260692 (Version 2)
Quarter: 2016Q1

REPORT INFORMATION
  Report Type: Spontaneous
  Country: US (occurrence: US)
  Receive Date: 20111116
  Receipt Date: 20160203
  Transmission Date: 20160526
  Serious: Yes (Death, Other)
  Sender: FDA-Public Use
  Company Number: 2011NUEUSA00050

PATIENT

DRUGS (34)
  1. AZILECT [Suspect]
     Active Substance: RASAGILINE MESYLATE
     Dosage: 1 MG, QD
     Route: 048
     Dates: start: 20111007, end: 20111013
  2. TRAZODONE [Suspect]
     Active Substance: TRAZODONE HYDROCHLORIDE
     Dosage: 50 MG, QD
     Dates: start: 20110302, end: 20111013
  3. COUMADIN [Concomitant]
     Active Substance: WARFARIN SODIUM
     Indication: ATRIAL FIBRILLATION
     Dosage: 3 MG,QD
     Route: 048
     Dates: start: 20110929, end: 20111003
  4. COUMADIN [Concomitant]
     Active Substance: WARFARIN SODIUM
     Dosage: UNK
  5. MILK OF MAGNESIA [Concomitant]
     Active Substance: MAGNESIUM HYDROXIDE
     Indication: CONSTIPATION
     Dosage: 30 ML, PRN
     Route: 048
     Dates: start: 20090320, end: 20111029
  6. SINEMET [Concomitant]
     Active Substance: CARBIDOPA\LEVODOPA
     Indication: PARKINSON^S DISEASE
     Dosage: 2 CAP, QID
     Route: 048
     Dates: start: 20090320, end: 20111028
  7. FIBER LAX [Concomitant]
     Active Substance: CALCIUM POLYCARBOPHIL
     Indication: CONSTIPATION PROPHYLAXIS
     Dosage: 1 CAP, QD
     Route: 048
     Dates: start: 20110606, end: 20111028
  8. TRAZODONE [Suspect]
     Active Substance: TRAZODONE HYDROCHLORIDE
     Indication: ANXIETY
     Dosage: 25 MG, QD
     Route: 048
     Dates: start: 20110205, end: 20111013
  9. TRAZODONE [Suspect]
     Active Substance: TRAZODONE HYDROCHLORIDE
     Dosage: 25 MG, BID
     Route: 048
     Dates: start: 20111014, end: 20111020
  10. REQUIP [Concomitant]
     Active Substance: ROPINIROLE HYDROCHLORIDE
     Indication: PARKINSON^S DISEASE
     Dosage: 0.25 MG, TID
     Route: 048
     Dates: start: 20090320, end: 20111028
  11. DULCOLAX (BISACODYL) [Concomitant]
     Active Substance: BISACODYL
     Indication: CONSTIPATION
     Dosage: 1 UNK, PRN
     Dates: start: 20090320, end: 20111028
  12. TRAZODONE [Suspect]
     Active Substance: TRAZODONE HYDROCHLORIDE
     Indication: DEPRESSION
     Dosage: 25 MG, PRN
     Route: 048
     Dates: start: 20090326, end: 20111018
  13. RISPERDAL [Concomitant]
     Active Substance: RISPERIDONE
     Indication: DEMENTIA
     Dosage: 0.125 MG, QD
     Route: 048
     Dates: start: 20090912, end: 20111028
  14. TYLENOL [Concomitant]
     Active Substance: ACETAMINOPHEN
     Dosage: 650 MG, QD
     Route: 048
     Dates: start: 20110307, end: 20111028
  15. AZILECT [Suspect]
     Active Substance: RASAGILINE MESYLATE
     Indication: PARKINSON^S DISEASE
     Dosage: 1 MG
     Dates: start: 20090320, end: 20111013
  16. AZILECT [Suspect]
     Active Substance: RASAGILINE MESYLATE
     Dosage: 1 MG, QOD
     Route: 048
     Dates: start: 20111014, end: 20111020
  17. MULTIVITAMIN                       /00831701/ [Concomitant]
     Active Substance: VITAMINS
     Indication: SUPPLEMENTATION THERAPY
     Dosage: 1 UNK, QD
     Route: 048
     Dates: start: 20101111, end: 20111028
  18. SENNA S [Concomitant]
     Active Substance: DOCUSATE SODIUM\SENNA LEAF
     Indication: CONSTIPATION PROPHYLAXIS
     Dosage: 2 TABLETS, BID
     Route: 048
     Dates: start: 20110524, end: 20111028
  19. NITRODISC [Concomitant]
     Active Substance: NITROGLYCERIN
     Indication: HYPERTENSION
  20. NUEDEXTA [Suspect]
     Active Substance: DEXTROMETHORPHAN HYDROBROMIDE\QUINIDINE SULFATE
     Indication: DEPRESSION
     Dosage: 1 CAP, QD
     Dates: start: 20111026, end: 20111028
  21. CYMBALTA [Suspect]
     Active Substance: DULOXETINE HYDROCHLORIDE
     Indication: DEPRESSION
     Dosage: 60 MG, QD
     Route: 048
     Dates: start: 20110915, end: 20111013
  22. CYMBALTA [Suspect]
     Active Substance: DULOXETINE HYDROCHLORIDE
     Dosage: 30 MG, QD
     Route: 048
     Dates: start: 20111025, end: 20111025
  23. TRAZODONE [Suspect]
     Active Substance: TRAZODONE HYDROCHLORIDE
     Dosage: 25 MG, QD
     Route: 048
     Dates: start: 20111021, end: 20111027
  24. COUMADIN [Concomitant]
     Active Substance: WARFARIN SODIUM
     Dosage: 3 MG, QD
     Route: 048
     Dates: start: 20111018, end: 20111028
  25. TYLENOL [Concomitant]
     Active Substance: ACETAMINOPHEN
     Indication: PAIN
     Dosage: 650 MG, QD
     Route: 048
     Dates: start: 20091217, end: 20111028
  26. NUEDEXTA [Suspect]
     Active Substance: DEXTROMETHORPHAN HYDROBROMIDE\QUINIDINE SULFATE
     Indication: CRYING
  27. CYMBALTA [Suspect]
     Active Substance: DULOXETINE HYDROCHLORIDE
     Dosage: 30 MG, QOD
     Route: 048
     Dates: start: 20111019, end: 20111025
  28. CYMBALTA [Suspect]
     Active Substance: DULOXETINE HYDROCHLORIDE
     Dosage: 30 MG
     Route: 048
     Dates: start: 20111028, end: 20111028
  29. COUMADIN [Concomitant]
     Active Substance: WARFARIN SODIUM
     Dosage: 3 MG
     Route: 048
     Dates: start: 20110929, end: 20111004
  30. NITRODISC [Concomitant]
     Active Substance: NITROGLYCERIN
     Indication: ATRIAL FIBRILLATION
     Dosage: 0.4 MG, QD
     Route: 061
     Dates: start: 20100630, end: 20111030
  31. WARFARIN SODIUM. [Concomitant]
     Active Substance: WARFARIN SODIUM
     Indication: ATRIAL FIBRILLATION
     Dosage: 3 MG, QD
     Route: 048
     Dates: start: 20111005, end: 20111017
  32. CYMBALTA [Suspect]
     Active Substance: DULOXETINE HYDROCHLORIDE
     Dosage: 30 MG, QD
     Route: 048
     Dates: start: 20111014, end: 20111017
  33. RISPERDAL [Concomitant]
     Active Substance: RISPERIDONE
     Indication: PARANOIA
     Dosage: 0.25 MG, BID
     Route: 048
     Dates: start: 20110610, end: 20111030
  34. RISPERDAL [Concomitant]
     Active Substance: RISPERIDONE
     Indication: DELUSION

REACTIONS (13)
  - Drug interaction [Unknown]
  - Death [Fatal]
  - Coma [Recovered/Resolved]
  - Dysstasia [Unknown]
  - Serotonin syndrome [Unknown]
  - Hypertension [Unknown]
  - Pyrexia [Unknown]
  - Blood urea increased [Unknown]
  - Asthenia [Unknown]
  - Lethargy [Unknown]
  - Hyperhidrosis [Unknown]
  - Incontinence [Unknown]
  - Blood electrolytes abnormal [Recovered/Resolved]

NARRATIVE: CASE EVENT DATE: 201110
